FAERS Safety Report 14281990 (Version 1)
Quarter: 2017Q4

REPORT INFORMATION
  Report Type: Spontaneous
  Country: GB (occurrence: GB)
  Receive Date: 20171213
  Receipt Date: 20171213
  Transmission Date: 20180321
  Serious: Yes (Hospitalization, Other)
  Sender: FDA-Public Use
  Company Number: GB-JNJFOC-20171210058

PATIENT
  Age: 30 Year
  Sex: Female
  Weight: 57.15 kg

DRUGS (1)
  1. TOPIRAMATE. [Suspect]
     Active Substance: TOPIRAMATE
     Indication: MIGRAINE PROPHYLAXIS
     Dosage: DOSAGE REPORTED AS 50
     Route: 048
     Dates: start: 20171112, end: 20171120

REACTIONS (5)
  - Pain [Unknown]
  - Ocular hyperaemia [Unknown]
  - Angle closure glaucoma [Recovering/Resolving]
  - Swelling [Unknown]
  - Vision blurred [Unknown]

NARRATIVE: CASE EVENT DATE: 20171120
